FAERS Safety Report 12890292 (Version 1)
Quarter: 2016Q4

REPORT INFORMATION
  Report Type: Spontaneous
  Country: US (occurrence: US)
  Receive Date: 20161027
  Receipt Date: 20161027
  Transmission Date: 20170207
  Serious: No
  Sender: FDA-Public Use
  Company Number: US-VIROPHARMA INCORPORATED-20120330CINRY2799

PATIENT
  Sex: Female

DRUGS (4)
  1. DANAZOL. [Suspect]
     Active Substance: DANAZOL
     Indication: HEREDITARY ANGIOEDEMA
     Dosage: 50-200MG/DAY, OTHER
     Route: 065
  2. CINRYZE [Suspect]
     Active Substance: HUMAN C1-ESTERASE INHIBITOR
     Indication: PROPHYLAXIS
  3. KALBITOR [Suspect]
     Active Substance: ECALLANTIDE
     Indication: HEREDITARY ANGIOEDEMA
     Dosage: UNKNOWN
     Route: 058
  4. CINRYZE [Suspect]
     Active Substance: HUMAN C1-ESTERASE INHIBITOR
     Indication: HEREDITARY ANGIOEDEMA
     Dosage: UNKNOWN
     Route: 065

REACTIONS (2)
  - Hereditary angioedema [Recovering/Resolving]
  - Condition aggravated [Recovering/Resolving]
